FAERS Safety Report 15058798 (Version 1)
Quarter: 2018Q2

REPORT INFORMATION
  Report Type: Spontaneous
  Country: IT (occurrence: IT)
  Receive Date: 20180625
  Receipt Date: 20180625
  Transmission Date: 20180711
  Serious: Yes (Other)
  Sender: FDA-Public Use
  Company Number: IT-OTSUKA-2018_017318

PATIENT

DRUGS (5)
  1. DEFIBROTIDE [Suspect]
     Active Substance: DEFIBROTIDE (BOVINE)
     Indication: PROPHYLAXIS
     Dosage: UNK
     Route: 065
  2. SOLIRIS [Suspect]
     Active Substance: ECULIZUMAB
     Indication: ATYPICAL HAEMOLYTIC URAEMIC SYNDROME
     Dosage: UNK
     Route: 065
  3. BUSULFAN. [Suspect]
     Active Substance: BUSULFAN
     Indication: STEM CELL TRANSPLANT
     Dosage: 80 MG/M2, QID (TARGETED AUC 85 MGX H/L)
     Route: 042
  4. RITUXIMAB. [Suspect]
     Active Substance: RITUXIMAB
     Indication: ANTI-PLATELET ANTIBODY
     Dosage: 375 MG/M2, QW
     Route: 065
  5. DEFIBROTIDE [Suspect]
     Active Substance: DEFIBROTIDE (BOVINE)
     Indication: VENOOCCLUSIVE DISEASE

REACTIONS (7)
  - Post procedural haemorrhage [Unknown]
  - Bone marrow failure [Unknown]
  - Pulmonary oedema [Unknown]
  - Venoocclusive liver disease [Unknown]
  - Thrombocytopenia [Unknown]
  - Atypical haemolytic uraemic syndrome [Unknown]
  - Anaemia [Unknown]
